FAERS Safety Report 10492125 (Version 1)
Quarter: 2014Q4

REPORT INFORMATION
  Report Type: Spontaneous
  Country: US (occurrence: US)
  Receive Date: 20141002
  Receipt Date: 20141002
  Transmission Date: 20150528
  Serious: Yes (Hospitalization)
  Sender: FDA-Public Use
  Company Number: US-GLAXOSMITHKLINE-A1065632A

PATIENT
  Age: 36 Year
  Sex: Male

DRUGS (16)
  1. ALBUTEROL SULFATE. [Concomitant]
     Active Substance: ALBUTEROL SULFATE
  2. SEROQUEL [Concomitant]
     Active Substance: QUETIAPINE FUMARATE
  3. ABILIFY [Concomitant]
     Active Substance: ARIPIPRAZOLE
  4. INHALER [Concomitant]
     Active Substance: UNSPECIFIED INGREDIENT
  5. IPRATROPIUM [Concomitant]
     Active Substance: IPRATROPIUM
  6. MELOXICAM. [Concomitant]
     Active Substance: MELOXICAM
  7. VERAMYST [Concomitant]
     Active Substance: FLUTICASONE FUROATE
  8. ADVAIR HFA [Suspect]
     Active Substance: FLUTICASONE PROPIONATE\SALMETEROL XINAFOATE
     Indication: PRODUCT USED FOR UNKNOWN INDICATION
     Route: 065
     Dates: start: 20091104
  9. GABAPENTIN. [Concomitant]
     Active Substance: GABAPENTIN
  10. DULERA [Concomitant]
     Active Substance: FORMOTEROL FUMARATE DIHYDRATE\MOMETASONE FUROATE
  11. ALBUTEROL INHALER [Concomitant]
     Active Substance: ALBUTEROL
  12. TEGRETOL [Concomitant]
     Active Substance: CARBAMAZEPINE
  13. CLONAZEPAM. [Concomitant]
     Active Substance: CLONAZEPAM
  14. ZOLPIDEM [Concomitant]
     Active Substance: ZOLPIDEM\ZOLPIDEM TARTRATE
  15. DEPAKOTE [Concomitant]
     Active Substance: DIVALPROEX SODIUM
  16. CYMBALTA [Concomitant]
     Active Substance: DULOXETINE HYDROCHLORIDE

REACTIONS (3)
  - Asthma [Unknown]
  - Pneumonia [Unknown]
  - Chronic obstructive pulmonary disease [Unknown]
